FAERS Safety Report 17405354 (Version 1)
Quarter: 2020Q1

REPORT INFORMATION
  Report Type: Spontaneous
  Country: JP (occurrence: JP)
  Receive Date: 20200212
  Receipt Date: 20200212
  Transmission Date: 20200409
  Serious: Yes (Other)
  Sender: FDA-Public Use
  Company Number: JP-TAKEDA-2020TJP003009

PATIENT
  Age: 7 Decade
  Sex: Female

DRUGS (5)
  1. AZILECT [Suspect]
     Active Substance: RASAGILINE MESYLATE
     Indication: PRODUCT USED FOR UNKNOWN INDICATION
     Dosage: 1 MILLIGRAM, QD
     Route: 065
  2. DOMPERIDONE [Concomitant]
     Active Substance: DOMPERIDONE
     Dosage: UNK UNK, TID
     Route: 065
  3. LEPRINTON [Concomitant]
     Active Substance: CARBIDOPA\LEVODOPA
     Dosage: 50 MILLIGRAM, TID
     Route: 065
  4. NESINA [Suspect]
     Active Substance: ALOGLIPTIN BENZOATE
     Indication: PRODUCT USED FOR UNKNOWN INDICATION
     Dosage: UNK
     Route: 065
  5. LEPRINTON [Concomitant]
     Active Substance: CARBIDOPA\LEVODOPA
     Dosage: 100 MILLIGRAM, TID
     Route: 065

REACTIONS (3)
  - Cerebral infarction [Unknown]
  - Dizziness [Unknown]
  - Hypoaesthesia [Unknown]
